FAERS Safety Report 8803826 (Version 2)
Quarter: 2012Q4

REPORT INFORMATION
  Report Type: 
  Country: US (occurrence: US)
  Receive Date: 20120924
  Receipt Date: 20121218
  Transmission Date: 20130627
  Serious: No
  Sender: FDA-Public Use
  Company Number: US-PFIZER INC-2012232417

PATIENT
  Age: 36 Year
  Sex: Female
  Weight: 53.52 kg

DRUGS (2)
  1. CYTOMEL [Suspect]
     Indication: HASHIMOTO^S DISEASE
     Dosage: 25 mg (half of the 25 mg tablet in morning and half at lunch two times a day), daily
     Route: 048
     Dates: start: 201207, end: 201207
  2. LOESTRIN 24 FE [Concomitant]
     Indication: ENDOMETRIOSIS
     Dosage: UNK, daily
     Dates: start: 2006

REACTIONS (6)
  - Dyspnoea [Recovered/Resolved]
  - Fatigue [Recovered/Resolved]
  - Anxiety [Recovered/Resolved]
  - Asthenia [Recovered/Resolved]
  - Skin disorder [Recovered/Resolved]
  - Feeling abnormal [Recovered/Resolved]
